FAERS Safety Report 25958131 (Version 1)
Quarter: 2025Q4

REPORT INFORMATION
  Report Type: Spontaneous
  Country: GB (occurrence: GB)
  Receive Date: 20251024
  Receipt Date: 20251024
  Transmission Date: 20260118
  Serious: Yes (Hospitalization, Other)
  Sender: NOVARTIS
  Company Number: GB-002147023-NVSC2025GB164168

PATIENT
  Age: 37 Year
  Sex: Female

DRUGS (2)
  1. CYCLOSPORINE [Suspect]
     Active Substance: CYCLOSPORINE
     Indication: Large granular lymphocytosis
     Dosage: UNK, BID (100-150 MG)
     Route: 065
     Dates: start: 20231101
  2. METHOTREXATE [Suspect]
     Active Substance: METHOTREXATE
     Indication: Large granular lymphocytosis
     Dosage: 17.5 MG, QW
     Route: 065
     Dates: start: 20210201, end: 20220301

REACTIONS (3)
  - Cytopenia [Unknown]
  - Pulmonary hypertension [Unknown]
  - Hypertension [Unknown]
